FAERS Safety Report 25798183 (Version 1)
Quarter: 2025Q3

REPORT INFORMATION
  Report Type: Spontaneous
  Country: BR (occurrence: BR)
  Receive Date: 20250912
  Receipt Date: 20250912
  Transmission Date: 20251021
  Serious: Yes (Other)
  Sender: ADMA BIOLOGICS
  Company Number: BR-ADMA BIOLOGICS INC.-BR-2025ADM000280

PATIENT
  Age: 46 Year
  Sex: Female

DRUGS (1)
  1. HUMAN IMMUNOGLOBULIN G [Suspect]
     Active Substance: HUMAN IMMUNOGLOBULIN G
     Indication: Chronic inflammatory demyelinating polyradiculoneuropathy
     Route: 042
     Dates: start: 20240815, end: 20240819

REACTIONS (3)
  - Autoimmune haemolytic anaemia [Recovering/Resolving]
  - Urine porphobilinogen increased [Recovering/Resolving]
  - Off label use [Unknown]

NARRATIVE: CASE EVENT DATE: 20240101
